FAERS Safety Report 9732610 (Version 1)
Quarter: 2013Q4

REPORT INFORMATION
  Report Type: Spontaneous
  Country: US (occurrence: US)
  Receive Date: 20131205
  Receipt Date: 20131205
  Transmission Date: 20140711
  Serious: No
  Sender: FDA-Public Use
  Company Number: US-GE HEALTHCARE MEDICAL DIAGNOSTICS-OMPQ-PR-1311S-1372

PATIENT
  Age: 21 Year
  Sex: Female
  Weight: 54.48 kg

DRUGS (2)
  1. OMNIPAQUE [Suspect]
     Indication: NECK MASS
     Route: 042
     Dates: start: 20131127, end: 20131127
  2. OMNIPAQUE [Suspect]
     Indication: DIAGNOSTIC PROCEDURE

REACTIONS (2)
  - Pruritus [Recovered/Resolved]
  - Urticaria [Recovered/Resolved]
